FAERS Safety Report 10089679 (Version 1)
Quarter: 2014Q2

REPORT INFORMATION
  Report Type: Spontaneous
  Country: FR (occurrence: None)
  Receive Date: 20140417
  Receipt Date: 20140417
  Transmission Date: 20141212
  Serious: Yes (Disabling)
  Sender: FDA-Public Use
  Company Number: SYM-2014-19495

PATIENT
  Age: 61 Year
  Sex: Female

DRUGS (2)
  1. FLAGYL (METRONIDAZOLE) (METRONIDAZOLE) [Suspect]
     Indication: GENITAL INFECTION FEMALE
     Route: 048
     Dates: start: 20140129, end: 20140215
  2. OFLOCET [Suspect]
     Indication: PRODUCT USED FOR UNKNOWN INDICATION
     Dosage: 2 UNITS,  1 IN 1 D
     Route: 048
     Dates: start: 20140128, end: 20140214

REACTIONS (9)
  - Arthralgia [None]
  - Arthralgia [None]
  - Sleep disorder [None]
  - Pain [None]
  - Pain in extremity [None]
  - Musculoskeletal pain [None]
  - Pain in extremity [None]
  - Tendon disorder [None]
  - Swelling [None]
